FAERS Safety Report 15566320 (Version 2)
Quarter: 2019Q1

REPORT INFORMATION
  Report Type: Spontaneous
  Country: JP (occurrence: JP)
  Receive Date: 20181030
  Receipt Date: 20190318
  Transmission Date: 20190417
  Serious: Yes (Life-Threatening, Hospitalization)
  Sender: FDA-Public Use
  Company Number: JP-PFIZER INC-3253248

PATIENT
  Age: 6 Decade
  Sex: Male
  Weight: 60 kg

DRUGS (7)
  1. BISOPROLOL FUMARATE. [Suspect]
     Active Substance: BISOPROLOL FUMARATE
     Dosage: 5 MG, DAILY
     Route: 048
  2. PRECEDEX [Suspect]
     Active Substance: DEXMEDETOMIDINE HYDROCHLORIDE
     Indication: SEDATION
     Dosage: 200 UG/KG, PER HOUR
     Route: 042
  3. AZILSARTAN [Suspect]
     Active Substance: AZILSARTAN KAMEDOXOMIL
     Dosage: 20 MG, PER DAY
     Route: 048
  4. BUPRENORPHINE HYDROCHLORIDE. [Suspect]
     Active Substance: BUPRENORPHINE HYDROCHLORIDE
     Indication: SEDATIVE THERAPY
     Dosage: UNK
  5. MIDAZOLAM [Suspect]
     Active Substance: MIDAZOLAM HYDROCHLORIDE
     Indication: SEDATIVE THERAPY
     Dosage: UNK
  6. NICARDIPINE [Suspect]
     Active Substance: NICARDIPINE
     Indication: HYPOTENSION
     Dosage: UNK
     Route: 042
  7. NIFEDIPINE. [Suspect]
     Active Substance: NIFEDIPINE
     Dosage: 60 MG, PER DAY, SUSTAINED RELEASE PREPARATION
     Route: 048

REACTIONS (1)
  - Arteriospasm coronary [Recovered/Resolved]
